FAERS Safety Report 4942923-0 (Version None)
Quarter: 2006Q1

REPORT INFORMATION
  Report Type: 
  Country: None (occurrence: None)
  Receive Date: 20060309
  Receipt Date: 20060224
  Transmission Date: 20060701
  Serious: Yes (Congenital Anomaly)
  Sender: FDA-Public Use
  Company Number: 2006-CZ-00776

PATIENT
  Sex: Male

DRUGS (2)
  1. FLUOXETINE [Suspect]
     Indication: DEPRESSION
     Dosage: 20 MG, TRANSPLACENTAL
     Route: 064
     Dates: start: 20050628, end: 20050706
  2. CITALOPRAM 20MG FLIM-COATED TABLETS (CITALOPRAM) [Suspect]
     Indication: DEPRESSION
     Dosage: 10-30 MG, TRANSPLACENTAL
     Route: 064
     Dates: start: 20050706

REACTIONS (4)
  - ATRIAL SEPTAL DEFECT [None]
  - CONGENITAL ANOMALY [None]
  - DEAFNESS UNILATERAL [None]
  - DRUG EXPOSURE DURING PREGNANCY [None]
